FAERS Safety Report 8940550 (Version 5)
Quarter: 2013Q1

REPORT INFORMATION
  Report Type: Report from Study
  Country: UG (occurrence: UG)
  Receive Date: 20121203
  Receipt Date: 20130201
  Transmission Date: 20140127
  Serious: Yes (Death, Life-Threatening, Hospitalization)
  Sender: FDA-Public Use
  Company Number: UG-GILEAD-2012-0065023

PATIENT
  Age: 33 Year
  Sex: Female

DRUGS (11)
  1. EFAVIRENZ/EMTRICITABINE/TENOFOVIR DISOPROXIL FUMARATE [Suspect]
     Indication: HIV INFECTION
     Dosage: 110 MG, QD
     Route: 048
     Dates: start: 20121025
  2. SULFAMETHOXAZOLE AND TRIMETHOPRIM [Concomitant]
     Dosage: UNK
     Dates: start: 20121010, end: 20121106
  3. CEFTRIAXONE SODIUM [Concomitant]
     Dosage: UNK
     Dates: end: 20121102
  4. DICLOFENAC [Concomitant]
     Dosage: UNK
     Dates: end: 20121101
  5. RIFAMPICIN [Concomitant]
     Indication: TUBERCULOSIS
     Dosage: UNK
     Dates: end: 20121118
  6. ISONIAZID [Concomitant]
     Indication: TUBERCULOSIS
     Dosage: UNK
     Dates: end: 20121118
  7. PYRAZINAMIDE [Concomitant]
     Indication: TUBERCULOSIS
     Dosage: UNK
     Dates: end: 20121118
  8. AMIKACIN [Concomitant]
     Dosage: UNK
     Dates: end: 20121118
  9. ETHAMBUTOL [Concomitant]
     Indication: TUBERCULOSIS
     Dosage: UNK
     Dates: end: 20121106
  10. DEXAMETHASONE [Concomitant]
     Dosage: UNK
     Dates: end: 20121118
  11. FLUCONAZOLE [Concomitant]
     Dosage: UNK
     Dates: end: 20121106

REACTIONS (2)
  - Disseminated tuberculosis [Fatal]
  - Sepsis [Recovered/Resolved]
